FAERS Safety Report 7804840-8 (Version None)
Quarter: 2011Q4

REPORT INFORMATION
  Report Type: 
  Country: None (occurrence: None)
  Receive Date: 20111010
  Receipt Date: 20111001
  Transmission Date: 20120403
  Serious: Yes (Other)
  Sender: FDA-Public Use
  Company Number: SE-UCBSA-039015

PATIENT
  Age: 42 Year
  Sex: Female

DRUGS (2)
  1. HUMIRA [Concomitant]
     Dosage: 40, 40 MG
     Dates: start: 20100618, end: 20110509
  2. CIMZIA [Suspect]
     Indication: PSORIATIC ARTHROPATHY
     Dosage: 200 MG ; PREFILLED SYRINGE
     Route: 058
     Dates: start: 20110520, end: 20110720

REACTIONS (1)
  - PSORIASIS [None]
